FAERS Safety Report 10380991 (Version 5)
Quarter: 2014Q4

REPORT INFORMATION
  Report Type: Report from Study
  Country: FR (occurrence: FR)
  Receive Date: 20140813
  Receipt Date: 20141210
  Transmission Date: 20150528
  Serious: Yes (Hospitalization, Other)
  Sender: FDA-Public Use
  Company Number: FR-JNJFOC-20140705729

PATIENT
  Sex: Female
  Weight: 87 kg

DRUGS (3)
  1. MOPRAL [Concomitant]
     Active Substance: OMEPRAZOLE SODIUM
  2. IBRUTINIB [Suspect]
     Active Substance: IBRUTINIB
     Indication: MANTLE CELL LYMPHOMA
     Route: 048
     Dates: start: 20140408
  3. IBRUTINIB [Suspect]
     Active Substance: IBRUTINIB
     Indication: MANTLE CELL LYMPHOMA
     Route: 048
     Dates: start: 20140708, end: 20140723

REACTIONS (6)
  - Escherichia sepsis [Unknown]
  - Skin disorder [Unknown]
  - Haemarthrosis [Unknown]
  - Thrombocytopenia [Unknown]
  - Alanine aminotransferase increased [Unknown]
  - Arthritis [Unknown]
